FAERS Safety Report 18169466 (Version 1)
Quarter: 2020Q3

REPORT INFORMATION
  Report Type: Spontaneous
  Country: US (occurrence: US)
  Receive Date: 20200819
  Receipt Date: 20200819
  Transmission Date: 20201103
  Serious: Yes (Hospitalization)
  Sender: FDA-Public Use
  Company Number: US-SHIRE-US202026337

PATIENT
  Age: 17 Year
  Sex: Female

DRUGS (9)
  1. CEPROTIN [Suspect]
     Active Substance: PROTEIN C
     Dosage: UNK
     Route: 065
  2. CEPROTIN [Suspect]
     Active Substance: PROTEIN C
     Dosage: UNK
     Route: 065
  3. CEPROTIN [Suspect]
     Active Substance: PROTEIN C
     Dosage: UNK
     Route: 065
  4. CEPROTIN [Suspect]
     Active Substance: PROTEIN C
     Indication: PRODUCT USED FOR UNKNOWN INDICATION
     Dosage: UNK
     Route: 065
  5. LOVENOX [Concomitant]
     Active Substance: ENOXAPARIN SODIUM
     Indication: PRODUCT USED FOR UNKNOWN INDICATION
  6. CEPROTIN [Suspect]
     Active Substance: PROTEIN C
     Dosage: UNK
     Route: 065
  7. CEPROTIN [Suspect]
     Active Substance: PROTEIN C
     Dosage: UNK
     Route: 065
  8. CEPROTIN [Suspect]
     Active Substance: PROTEIN C
     Dosage: UNK
     Route: 065
  9. CEPROTIN [Suspect]
     Active Substance: PROTEIN C
     Dosage: UNK
     Route: 065

REACTIONS (2)
  - Contusion [Unknown]
  - Purpura [Unknown]
